FAERS Safety Report 8177054-2 (Version None)
Quarter: 2012Q1

REPORT INFORMATION
  Report Type: 
  Country: None (occurrence: None)
  Receive Date: 20120301
  Receipt Date: 20110412
  Transmission Date: 20120608
  Serious: Yes (Other)
  Sender: FDA-Public Use
  Company Number: US-GLAXOSMITHKLINE-A0923690A

PATIENT
  Sex: Female
  Weight: 63.2 kg

DRUGS (4)
  1. ENOXAPARIN [Concomitant]
  2. SOTALOL HCL [Concomitant]
  3. TYKERB [Suspect]
     Indication: BREAST CANCER
     Dosage: 1250MG PER DAY
     Route: 048
  4. ZOFRAN [Concomitant]

REACTIONS (4)
  - DIARRHOEA [None]
  - PALMAR-PLANTAR ERYTHRODYSAESTHESIA SYNDROME [None]
  - DECREASED APPETITE [None]
  - NAUSEA [None]
